FAERS Safety Report 8787151 (Version 1)
Quarter: 2012Q4

REPORT INFORMATION
  Report Type: 
  Country: US (occurrence: US)
  Receive Date: 20120914
  Receipt Date: 20120914
  Transmission Date: 20130627
  Serious: Yes (Disabling, Other)
  Sender: FDA-Public Use
  Company Number: US-ELI_LILLY_AND_COMPANY-US201209001277

PATIENT
  Age: 53 Year
  Sex: Female

DRUGS (3)
  1. CYMBALTA [Suspect]
     Indication: PAIN
     Dosage: 60 mg, qd
     Dates: start: 2008
  2. CYMBALTA [Suspect]
     Dosage: 60 mg, 2/W
     Dates: start: 201206
  3. CYMBALTA [Suspect]
     Dosage: 60 mg, qd
     Dates: start: 201206

REACTIONS (6)
  - Fall [Unknown]
  - Spinal fracture [Unknown]
  - Loss of consciousness [Unknown]
  - Parathyroid tumour [Unknown]
  - Irritability [Unknown]
  - Drug withdrawal syndrome [Unknown]
